FAERS Safety Report 23512321 (Version 1)
Quarter: 2024Q1

REPORT INFORMATION
  Report Type: Report from Study
  Country: US (occurrence: US)
  Receive Date: 20240212
  Receipt Date: 20240212
  Transmission Date: 20240409
  Serious: Yes (Other)
  Sender: FDA-Public Use
  Company Number: US-BAYER-2024A018058

PATIENT

DRUGS (1)
  1. BAYER RAPID RELIEF [Suspect]
     Active Substance: ASPIRIN\CAFFEINE
     Route: 048

REACTIONS (2)
  - Choking [Unknown]
  - Product after taste [Unknown]
